FAERS Safety Report 9109264 (Version 2)
Quarter: 2013Q1

REPORT INFORMATION
  Report Type: Spontaneous
  Country: JP (occurrence: JP)
  Receive Date: 20130222
  Receipt Date: 20130325
  Transmission Date: 20140127
  Serious: Yes (Life-Threatening)
  Sender: FDA-Public Use
  Company Number: JP-JNJFOC-20130211152

PATIENT
  Sex: Male

DRUGS (1)
  1. REMICADE [Suspect]
     Indication: KAWASAKI^S DISEASE
     Route: 042

REACTIONS (2)
  - Coronary artery aneurysm [Unknown]
  - Drug ineffective for unapproved indication [Unknown]
